FAERS Safety Report 4335939-9 (Version None)
Quarter: 2004Q2

REPORT INFORMATION
  Report Type: 
  Country: None (occurrence: None)
  Receive Date: 20040408
  Receipt Date: 20040325
  Transmission Date: 20050107
  Serious: Yes (Death)
  Sender: FDA-Public Use
  Company Number: 2004S1000692

PATIENT
  Age: 52 Year
  Sex: Female

DRUGS (3)
  1. CLOZAPINE [Suspect]
     Dosage: 200 MG Q AM + 400MG Q HS, ORAL
     Route: 048
     Dates: start: 20030731, end: 20030821
  2. CLOZAPINE [Suspect]
     Dosage: 200 MG Q AM + 400MG Q HS, ORAL
     Route: 048
     Dates: start: 20040105, end: 20040229
  3. DIVALPROEX SODIUM [Concomitant]

REACTIONS (2)
  - LUNG CANCER METASTATIC [None]
  - METASTASES TO CENTRAL NERVOUS SYSTEM [None]
